FAERS Safety Report 12801737 (Version 3)
Quarter: 2017Q4

REPORT INFORMATION
  Report Type: Spontaneous
  Country: US (occurrence: US)
  Receive Date: 20161003
  Receipt Date: 20171109
  Transmission Date: 20180320
  Serious: No
  Sender: FDA-Public Use
  Company Number: US-PFIZER INC-2016458556

PATIENT
  Age: 73 Year
  Sex: Male

DRUGS (1)
  1. SUTENT [Suspect]
     Active Substance: SUNITINIB MALATE
     Dosage: 37.5 MG, 1X/DAY (ONE CAPSULE ONCE A DAY, 14 DAYS ON, 7 DAYS OFF)
     Route: 048

REACTIONS (2)
  - Diarrhoea [Unknown]
  - Hypercalcaemia [Unknown]
